FAERS Safety Report 12859555 (Version 1)
Quarter: 2016Q4

REPORT INFORMATION
  Report Type: Spontaneous
  Country: US (occurrence: US)
  Receive Date: 20161017
  Receipt Date: 20161017
  Transmission Date: 20170207
  Serious: Yes (Disabling)
  Sender: FDA-Public Use
  Company Number: None

PATIENT
  Age: 61 Year
  Sex: Male
  Weight: 121.67 kg

DRUGS (13)
  1. MELOXICAM 15 MG TAB UNIC UNICHEM [Suspect]
     Active Substance: MELOXICAM
     Indication: DIABETIC NEUROPATHY
     Dosage: 1 PILL 1 A DAY MORN. BY MOUTH
     Route: 048
     Dates: start: 20160708, end: 20160807
  2. VITAMIN D3 [Concomitant]
     Active Substance: CHOLECALCIFEROL
  3. ASPRIN [Concomitant]
     Active Substance: ASPIRIN
  4. MULTIMINERAL SUPPLEMENT [Concomitant]
  5. GLYBURIDE. [Concomitant]
     Active Substance: GLYBURIDE
  6. METFORMIN [Concomitant]
     Active Substance: METFORMIN HYDROCHLORIDE
  7. IBUPROFEN. [Concomitant]
     Active Substance: IBUPROFEN
  8. GABAPENTIN. [Concomitant]
     Active Substance: GABAPENTIN
  9. FLAXSEED [Concomitant]
     Active Substance: FLAX SEED
  10. ATORVASTATIN [Concomitant]
     Active Substance: ATORVASTATIN
  11. ONE DAY FOR MEM OVER 50 YEARS [Concomitant]
  12. LISINOPRILL [Concomitant]
  13. CENTRUM SILVER MULTIVITAMIN [Concomitant]

REACTIONS (8)
  - Asthenia [None]
  - Loss of consciousness [None]
  - Chest pain [None]
  - Dizziness [None]
  - Peripheral swelling [None]
  - Gastrointestinal pain [None]
  - Somnolence [None]
  - Abdominal discomfort [None]

NARRATIVE: CASE EVENT DATE: 20160714
